FAERS Safety Report 6785816-9 (Version None)
Quarter: 2010Q2

REPORT INFORMATION
  Report Type: 
  Country: None (occurrence: None)
  Receive Date: 20100621
  Receipt Date: 20100621
  Transmission Date: 20101027
  Serious: No
  Sender: FDA-Public Use
  Company Number: None

PATIENT
  Sex: Female
  Weight: 88.905 kg

DRUGS (1)
  1. ZESTORETIC [Suspect]
     Indication: HYPERTENSION
     Dosage: 10/12.5 MG DAILY P.O.
     Route: 048
     Dates: start: 20100224, end: 20100302

REACTIONS (1)
  - HYPOAESTHESIA FACIAL [None]
